FAERS Safety Report 6310183-4 (Version None)
Quarter: 2009Q3

REPORT INFORMATION
  Report Type: 
  Country: None (occurrence: None)
  Receive Date: 20090814
  Receipt Date: 20090810
  Transmission Date: 20100115
  Serious: Yes (Other)
  Sender: FDA-Public Use
  Company Number: US-MERCK-0908USA01548

PATIENT
  Sex: Male

DRUGS (1)
  1. COSOPT [Suspect]
     Route: 047

REACTIONS (4)
  - BLINDNESS [None]
  - DIPLOPIA [None]
  - ERYTHEMA [None]
  - PAIN [None]
